FAERS Safety Report 8364062-1 (Version None)
Quarter: 2012Q2

REPORT INFORMATION
  Report Type: 
  Country: None (occurrence: None)
  Receive Date: 20120516
  Receipt Date: 20120227
  Transmission Date: 20120825
  Serious: No
  Sender: FDA-Public Use
  Company Number: US-ALEXION-A201200356

PATIENT
  Age: 21 Year

DRUGS (1)
  1. SOLIRIS [Suspect]
     Indication: HAEMOLYTIC URAEMIC SYNDROME
     Dosage: UNK
     Route: 042
     Dates: start: 20120223

REACTIONS (4)
  - HAEMOGLOBIN ABNORMAL [None]
  - PLATELET COUNT DECREASED [None]
  - RETICULOCYTE COUNT ABNORMAL [None]
  - BLOOD LACTATE DEHYDROGENASE ABNORMAL [None]
